FAERS Safety Report 19012986 (Version 1)
Quarter: 2021Q1

REPORT INFORMATION
  Report Type: Report from Study
  Country: US (occurrence: US)
  Receive Date: 20210316
  Receipt Date: 20210316
  Transmission Date: 20210420
  Serious: Yes (Hospitalization)
  Sender: FDA-Public Use
  Company Number: US-GLAXOSMITHKLINE-US2021GSK060835

PATIENT
  Age: 70 Year
  Sex: Male
  Weight: 82.09 kg

DRUGS (8)
  1. NIRAPARIB [Suspect]
     Active Substance: NIRAPARIB
     Indication: HEAD AND NECK CANCER METASTATIC
     Dosage: 200 MG, QD
     Route: 048
     Dates: start: 20201230, end: 20210305
  2. DOSTARLIMAB [Suspect]
     Active Substance: DOSTARLIMAB
     Indication: HEAD AND NECK CANCER METASTATIC
     Dosage: 250 ML, CYC (Q3WEEKS)
     Route: 042
     Dates: start: 20210105, end: 20210105
  3. METFORMIN [Concomitant]
     Active Substance: METFORMIN HYDROCHLORIDE
     Dosage: UNK
     Dates: start: 20110101
  4. INSULIN GLARGINE [Concomitant]
     Active Substance: INSULIN GLARGINE
     Dosage: UNK
     Dates: start: 20110101
  5. ROSUVASTATIN. [Concomitant]
     Active Substance: ROSUVASTATIN
     Dosage: UNK
     Dates: start: 20180101
  6. DOSTARLIMAB [Suspect]
     Active Substance: DOSTARLIMAB
     Dosage: 250 ML, CYC (Q3WEEKS)
     Route: 042
     Dates: start: 20210219, end: 20210219
  7. LEVOTHYROXINE. [Concomitant]
     Active Substance: LEVOTHYROXINE
     Dosage: UNK
     Dates: start: 20201001
  8. INSULIN LISPRO [Concomitant]
     Active Substance: INSULIN LISPRO
     Dosage: UNK
     Dates: start: 20110101

REACTIONS (2)
  - Hyponatraemia [Unknown]
  - Hyperkalaemia [Unknown]

NARRATIVE: CASE EVENT DATE: 20210309
